FAERS Safety Report 14368582 (Version 4)
Quarter: 2018Q4

REPORT INFORMATION
  Report Type: Spontaneous
  Country: US (occurrence: US)
  Receive Date: 20180109
  Receipt Date: 20181231
  Transmission Date: 20190204
  Serious: No
  Sender: FDA-Public Use
  Company Number: US-ACTELION-A-US2018-165393

PATIENT
  Age: 68 Year
  Sex: Male
  Weight: 77.55 kg

DRUGS (8)
  1. UPTRAVI [Suspect]
     Active Substance: SELEXIPAG
     Indication: PULMONARY ARTERIAL HYPERTENSION
     Dosage: 200 MCG, BID
     Route: 048
  2. UPTRAVI [Suspect]
     Active Substance: SELEXIPAG
     Dosage: 1200 UNK, UNK
     Route: 048
  3. UPTRAVI [Suspect]
     Active Substance: SELEXIPAG
     Dosage: 1000 MCG, BID
     Route: 048
  4. UPTRAVI [Suspect]
     Active Substance: SELEXIPAG
     Dosage: 400 MCG, QAM, 200 MCG QPM.
     Route: 048
  5. UPTRAVI [Suspect]
     Active Substance: SELEXIPAG
     Dosage: 600 MCG, BID
     Route: 048
     Dates: start: 20180501
  6. SILDENAFIL. [Concomitant]
     Active Substance: SILDENAFIL
     Indication: PULMONARY ARTERIAL HYPERTENSION
  7. LETAIRIS [Concomitant]
     Active Substance: AMBRISENTAN
  8. WARFARIN [Concomitant]
     Active Substance: WARFARIN

REACTIONS (13)
  - Chills [Unknown]
  - Swelling [Unknown]
  - Skin discolouration [Unknown]
  - Swelling face [Unknown]
  - Abdominal pain [Unknown]
  - Multiple allergies [Unknown]
  - Sneezing [Unknown]
  - Ear congestion [Unknown]
  - Lacrimation increased [Unknown]
  - Cough [Unknown]
  - Erythema [Unknown]
  - Flushing [Unknown]
  - Ear swelling [Recovering/Resolving]

NARRATIVE: CASE EVENT DATE: 20180502
